FAERS Safety Report 4563815-5 (Version None)
Quarter: 2005Q1

REPORT INFORMATION
  Report Type: 
  Country: None (occurrence: None)
  Receive Date: 20050112
  Receipt Date: 20050112
  Transmission Date: 20050727
  Serious: No
  Sender: FDA-Public Use
  Company Number: None

PATIENT
  Sex: Female

DRUGS (2)
  1. BUSPIRONE [Suspect]
     Indication: DISEASE RECURRENCE
     Dosage: 30 MG PO TID
     Route: 048
     Dates: start: 20010301
  2. BUSPIRONE [Suspect]
     Indication: MAJOR DEPRESSION
     Dosage: 30 MG PO TID
     Route: 048
     Dates: start: 20010301

REACTIONS (5)
  - BULIMIA NERVOSA [None]
  - CONDITION AGGRAVATED [None]
  - PARANOIA [None]
  - PSYCHOTIC DISORDER [None]
  - PURGING [None]
